FAERS Safety Report 9525771 (Version 4)
Quarter: 2013Q4

REPORT INFORMATION
  Report Type: Report from Study
  Country: US (occurrence: US)
  Receive Date: 20130916
  Receipt Date: 20131028
  Transmission Date: 20140711
  Serious: Yes (Hospitalization)
  Sender: FDA-Public Use
  Company Number: US-BIOGENIDEC-2013BI087024

PATIENT
  Age: 19 Year
  Sex: Female
  Weight: 44 kg

DRUGS (3)
  1. TYSABRI [Suspect]
     Indication: CROHN^S DISEASE
     Route: 042
     Dates: start: 20130801, end: 20130830
  2. PREDNISONE [Concomitant]
     Indication: CROHN^S DISEASE
     Dates: start: 2013, end: 20130904
  3. PREDNISONE [Concomitant]
     Indication: CROHN^S DISEASE
     Dates: start: 201309

REACTIONS (1)
  - Crohn^s disease [Not Recovered/Not Resolved]
